FAERS Safety Report 19969400 (Version 1)
Quarter: 2021Q4

REPORT INFORMATION
  Report Type: Spontaneous
  Country: FR (occurrence: FR)
  Receive Date: 20211019
  Receipt Date: 20211019
  Transmission Date: 20220303
  Serious: Yes (Hospitalization)
  Sender: FDA-Public Use
  Company Number: None

PATIENT
  Age: 76 Year
  Sex: Female

DRUGS (2)
  1. ATORVASTATIN CALCIUM [Suspect]
     Active Substance: ATORVASTATIN CALCIUM
     Indication: Cerebrovascular accident
     Dosage: 80 MG
     Route: 048
     Dates: start: 202107, end: 20210810
  2. LEVOFLOXACIN [Suspect]
     Active Substance: LEVOFLOXACIN
     Indication: Urinary tract infection
     Dosage: 500 MG
     Route: 048
     Dates: start: 20210729, end: 20210806

REACTIONS (2)
  - Hepatic cytolysis [Recovered/Resolved]
  - Cholestasis [Recovered/Resolved]

NARRATIVE: CASE EVENT DATE: 20210808
